FAERS Safety Report 17764173 (Version 2)
Quarter: 2020Q2

REPORT INFORMATION
  Report Type: Spontaneous
  Country: US (occurrence: US)
  Receive Date: 20200511
  Receipt Date: 20200527
  Transmission Date: 20200714
  Serious: Yes (Other)
  Sender: FDA-Public Use
  Company Number: US-AUROBINDO-AUR-APL-2020-022489

PATIENT
  Age: 64 Year
  Sex: Female
  Weight: 54.88 kg

DRUGS (4)
  1. OXCARBAZEPINE. [Interacting]
     Active Substance: OXCARBAZEPINE
     Indication: SEIZURE
     Dosage: 75 MILLIGRAM, ONCE A DAY
     Route: 065
  2. OXCARBAZEPINE. [Interacting]
     Active Substance: OXCARBAZEPINE
     Dosage: 150 MILLIGRAM, ONCE A DAY (DOSE INCREASED FOR THREE DAYS WHEN HAD SEIZURES)
     Route: 065
  3. OXCARBAZEPINE. [Interacting]
     Active Substance: OXCARBAZEPINE
     Dosage: 75 MILLIGRAM, ONCE A DAY
     Route: 065
  4. SULFAMETHOXAZOLE AND TRIMETHOPRIM TABLETS USP 800/160 MG [Suspect]
     Active Substance: SULFAMETHOXAZOLE\TRIMETHOPRIM
     Indication: STAPHYLOCOCCAL INFECTION
     Dosage: 1 DOSAGE FORM, TWO TIMES A DAY, FOR 10 DAYS
     Route: 048
     Dates: start: 20200317

REACTIONS (4)
  - Musculoskeletal stiffness [Recovered/Resolved]
  - Aura [Recovered/Resolved]
  - Seizure [Recovered/Resolved]
  - Drug interaction [Unknown]
